FAERS Safety Report 18617080 (Version 4)
Quarter: 2021Q1

REPORT INFORMATION
  Report Type: Other
  Country: DE (occurrence: DE)
  Receive Date: 20201215
  Receipt Date: 20210324
  Transmission Date: 20210419
  Serious: Yes (Other)
  Sender: FDA-Public Use
  Company Number: DE-ROCHE-2728945

PATIENT
  Age: 34 Year
  Sex: Male

DRUGS (6)
  1. OCREVUS [Suspect]
     Active Substance: OCRELIZUMAB
     Indication: RELAPSING-REMITTING MULTIPLE SCLEROSIS
     Route: 042
     Dates: start: 20200914
  2. SATIVEX [Suspect]
     Active Substance: NABIXIMOLS
     Indication: PRODUCT USED FOR UNKNOWN INDICATION
     Dosage: 2 TO 5 PUFFS
     Route: 065
     Dates: start: 20210216
  3. KRILL OIL [Concomitant]
     Active Substance: DIETARY SUPPLEMENT\KRILL OIL
  4. FAMPYRA [Concomitant]
     Active Substance: DALFAMPRIDINE
     Dosage: 1?0?1
  5. VITAMIN B COMPLEX [Concomitant]
     Active Substance: CYANOCOBALAMIN\DEXPANTHENOL\NIACINAMIDE\PYRIDOXINE HYDROCHLORIDE\RIBOFLAVIN 5^-PHOSPHATE SODIUM\THIAMINE HYDROCHLORIDE\VITAMIN B COMPLEX
  6. VITAMIN B6 [Concomitant]
     Active Substance: PYRIDOXINE HYDROCHLORIDE
     Dosage: EVERY 2 TO 3 WEEKS
     Route: 030

REACTIONS (6)
  - Oropharyngeal pain [Recovered/Resolved]
  - Peripheral coldness [Recovered/Resolved]
  - Cytokine release syndrome [Recovered/Resolved]
  - Dry throat [Recovered/Resolved]
  - Productive cough [Recovered/Resolved]
  - Aphthous ulcer [Recovered/Resolved]

NARRATIVE: CASE EVENT DATE: 20200914
